FAERS Safety Report 23820565 (Version 1)
Quarter: 2024Q2

REPORT INFORMATION
  Report Type: Spontaneous
  Country: US (occurrence: None)
  Receive Date: 20240503
  Receipt Date: 20240503
  Transmission Date: 20240716
  Serious: Yes (Hospitalization)
  Sender: FDA-Public Use
  Company Number: None

PATIENT
  Age: 23 Year
  Sex: Female
  Weight: 72 kg

DRUGS (5)
  1. BUPROPION HYDROCHLORIDE [Suspect]
     Active Substance: BUPROPION HYDROCHLORIDE
     Indication: Attention deficit hyperactivity disorder
     Dosage: OTHER QUANTITY : 1 TABLET(S);?
     Route: 048
     Dates: start: 20240212, end: 20240216
  2. SLYND BIRTH CONTROL [Concomitant]
  3. GENERIC MULTI VITAMIN [Concomitant]
  4. HERBALS\WITHANIA SOMNIFERA ROOT [Concomitant]
     Active Substance: HERBALS\WITHANIA SOMNIFERA ROOT
  5. GLUCOSAMINE [Concomitant]
     Active Substance: GLUCOSAMINE

REACTIONS (8)
  - Tremor [None]
  - Vision blurred [None]
  - Emotional disorder [None]
  - Disturbance in attention [None]
  - Abnormal dreams [None]
  - Nightmare [None]
  - Violence-related symptom [None]
  - Therapy cessation [None]

NARRATIVE: CASE EVENT DATE: 20240216
